FAERS Safety Report 17056165 (Version 4)
Quarter: 2019Q4

REPORT INFORMATION
  Report Type: Spontaneous
  Country: ME (occurrence: ME)
  Receive Date: 20191121
  Receipt Date: 20191223
  Transmission Date: 20200122
  Serious: Yes (Life-Threatening, Hospitalization)
  Sender: FDA-Public Use
  Company Number: ME-B.I. PHARMACEUTICALS,INC./RIDGEFIELD-2019-BI-114578

PATIENT
  Age: 67 Year
  Sex: Female

DRUGS (4)
  1. PRESOLOL [METOPROLOL TARTRATE] [Concomitant]
     Indication: HYPERTENSION
     Route: 048
     Dates: start: 20160514
  2. PRILENAP [ENALAPRIL MALEATE;HYDROCHLOROTHIAZIDE] [Concomitant]
     Indication: HYPERTENSION
     Route: 048
  3. PRADAXA [Suspect]
     Active Substance: DABIGATRAN ETEXILATE MESYLATE
     Indication: ATRIAL FIBRILLATION
     Route: 048
     Dates: start: 20160514, end: 20191106
  4. BENSEDIN [Concomitant]
     Active Substance: DIAZEPAM
     Indication: PRODUCT USED FOR UNKNOWN INDICATION
     Route: 048

REACTIONS (2)
  - Hypertension [Unknown]
  - Haemorrhage intracranial [Unknown]

NARRATIVE: CASE EVENT DATE: 20191107
